FAERS Safety Report 6668681-X (Version None)
Quarter: 2010Q2

REPORT INFORMATION
  Report Type: 
  Country: None (occurrence: None)
  Receive Date: 20100406
  Receipt Date: 20100324
  Transmission Date: 20101027
  Serious: Yes (Hospitalization)
  Sender: FDA-Public Use
  Company Number: PHHY2010JP15821

PATIENT
  Age: 37 Year
  Sex: Female

DRUGS (2)
  1. VOLTAREN [Suspect]
     Indication: PAIN
     Dosage: 25 MG DAILY
     Route: 048
  2. MEIACT [Concomitant]
     Indication: INFLAMMATION

REACTIONS (12)
  - ARTHRALGIA [None]
  - DRUG ERUPTION [None]
  - HEADACHE [None]
  - HYPOAESTHESIA [None]
  - HYPOPHAGIA [None]
  - LYMPH NODE PAIN [None]
  - ODYNOPHAGIA [None]
  - OROPHARYNGEAL PAIN [None]
  - PHARYNGITIS [None]
  - RELAPSING FEVER [None]
  - STILL'S DISEASE ADULT ONSET [None]
  - URTICARIA [None]
